FAERS Safety Report 24636615 (Version 2)
Quarter: 2025Q1

REPORT INFORMATION
  Report Type: Report from Study
  Country: SE (occurrence: SE)
  Receive Date: 20241119
  Receipt Date: 20250213
  Transmission Date: 20250408
  Serious: Yes (Other)
  Sender: MYLAN
  Company Number: SE-MYLANLABS-2024M1103561

PATIENT
  Age: 46 Year
  Sex: Female

DRUGS (1)
  1. SERTRALINE [Suspect]
     Active Substance: SERTRALINE HYDROCHLORIDE
     Indication: Product used for unknown indication
     Route: 065

REACTIONS (4)
  - Multiple acyl-coenzyme A dehydrogenase deficiency [Recovering/Resolving]
  - Dyspnoea [Recovering/Resolving]
  - Lipid metabolism disorder [Recovering/Resolving]
  - Myopathy [Recovering/Resolving]
